FAERS Safety Report 26193401 (Version 1)
Quarter: 2025Q4

REPORT INFORMATION
  Report Type: Spontaneous
  Country: LB (occurrence: LB)
  Receive Date: 20251223
  Receipt Date: 20251223
  Transmission Date: 20260118
  Serious: Yes (Life-Threatening, Hospitalization)
  Sender: B. BRAUN MEDICAL INC.
  Company Number: None

PATIENT
  Age: 79 Year
  Sex: Female

DRUGS (6)
  1. METRONIDAZOLE [Suspect]
     Active Substance: METRONIDAZOLE
     Indication: Antibiotic therapy
  2. CEFTRIAXONE [Suspect]
     Active Substance: CEFTRIAXONE
     Indication: Antibiotic therapy
  3. PERINDOPRIL [Concomitant]
     Active Substance: PERINDOPRIL
  4. BISOPROLOL [Concomitant]
     Active Substance: BISOPROLOL
  5. HYDROCHLOROTHIAZIDE [Concomitant]
     Active Substance: HYDROCHLOROTHIAZIDE
  6. ROSUVASTATIN [Concomitant]
     Active Substance: ROSUVASTATIN

REACTIONS (4)
  - Drug reaction with eosinophilia and systemic symptoms [Recovered/Resolved]
  - Gamma-glutamyltransferase increased [Recovered/Resolved]
  - Blood alkaline phosphatase increased [Recovered/Resolved]
  - Lipase increased [Recovered/Resolved]

NARRATIVE: CASE EVENT DATE: 20230201
